FAERS Safety Report 5441776-4 (Version None)
Quarter: 2007Q3

REPORT INFORMATION
  Report Type: 
  Country: None (occurrence: None)
  Receive Date: 20070830
  Receipt Date: 20070830
  Transmission Date: 20080115
  Serious: Yes (Hospitalization)
  Sender: FDA-Public Use
  Company Number: None

PATIENT
  Age: 87 Year
  Sex: Male

DRUGS (1)
  1. IBUPROFEN [Suspect]
     Indication: PAIN
     Dosage: 200 MG QID PO
     Route: 048
     Dates: start: 20061004, end: 20070523

REACTIONS (2)
  - BLOOD PRESSURE SYSTOLIC INCREASED [None]
  - RENAL FAILURE ACUTE [None]
